FAERS Safety Report 16270182 (Version 1)
Quarter: 2019Q2

REPORT INFORMATION
  Report Type: Spontaneous
  Country: US (occurrence: US)
  Receive Date: 20190329
  Receipt Date: 20190329
  Transmission Date: 20190711
  Serious: No
  Sender: FDA-Public Use
  Company Number: None

PATIENT
  Sex: Female

DRUGS (11)
  1. CYCLOBENZAPR [Concomitant]
     Active Substance: CYCLOBENZAPRINE
  2. ATORVASTATIN [Concomitant]
     Active Substance: ATORVASTATIN
  3. NEURONTIN [Concomitant]
     Active Substance: GABAPENTIN
  4. FOLIC ACID. [Concomitant]
     Active Substance: FOLIC ACID
  5. METHOTREXATE. [Concomitant]
     Active Substance: METHOTREXATE
  6. DONEPEZIL. [Concomitant]
     Active Substance: DONEPEZIL
  7. PREDNISONE. [Concomitant]
     Active Substance: PREDNISONE
  8. NATURE-THROI [Concomitant]
  9. ACTEMRA [Suspect]
     Active Substance: TOCILIZUMAB
     Indication: RHEUMATOID ARTHRITIS
     Route: 058
     Dates: start: 20170127
  10. PHENTERMINE. [Concomitant]
     Active Substance: PHENTERMINE
  11. DOXYCYCL HYC [Concomitant]

REACTIONS (2)
  - Rheumatoid arthritis [None]
  - Therapy cessation [None]
